FAERS Safety Report 17150287 (Version 3)
Quarter: 2020Q2

REPORT INFORMATION
  Report Type: Spontaneous
  Country: FI (occurrence: FI)
  Receive Date: 20191213
  Receipt Date: 20200507
  Transmission Date: 20200713
  Serious: Yes (Hospitalization, Other)
  Sender: FDA-Public Use
  Company Number: FI-009507513-1912FIN006204

PATIENT
  Age: 34 Year
  Sex: Male
  Weight: 102 kg

DRUGS (4)
  1. GONADOTROPIN, CHORIONIC [Suspect]
     Active Substance: CHORIOGONADOTROPIN ALFA
     Indication: SEMEN VOLUME DECREASED
     Dosage: UNK
     Route: 065
  2. SUSTANON 250 [Suspect]
     Active Substance: TESTOSTERONE
     Dosage: INJECTIONS
     Route: 065
  3. MENOTROPINS [Suspect]
     Active Substance: MENOTROPINS
     Indication: SEMEN VOLUME DECREASED
     Dosage: UNK
     Route: 065
  4. SUSTANON 250 [Suspect]
     Active Substance: TESTOSTERONE
     Dosage: UNK
     Route: 065

REACTIONS (7)
  - Ventricular tachycardia [Unknown]
  - Atrial fibrillation [Unknown]
  - Ventricular hypertrophy [Unknown]
  - Ventricular hypokinesia [Unknown]
  - Performance enhancing product use [Unknown]
  - Secondary hypogonadism [Unknown]
  - Wolff-Parkinson-White syndrome [Unknown]
